FAERS Safety Report 16648813 (Version 1)
Quarter: 2019Q3

REPORT INFORMATION
  Report Type: Spontaneous
  Country: US (occurrence: US)
  Receive Date: 20190730
  Receipt Date: 20190730
  Transmission Date: 20191004
  Serious: Yes (Other)
  Sender: FDA-Public Use
  Company Number: PHHY2019US173287

PATIENT
  Age: 40 Year
  Sex: Female

DRUGS (1)
  1. FLUOCINONIDE. [Suspect]
     Active Substance: FLUOCINONIDE
     Indication: MUCOSAL INFLAMMATION
     Dosage: UNK UNK, BID
     Route: 048

REACTIONS (5)
  - Retinal pigment epithelial tear [Recovered/Resolved]
  - Macular detachment [Recovered/Resolved]
  - Vision blurred [Recovered/Resolved]
  - Serous retinal detachment [Recovered/Resolved]
  - Visual impairment [Recovered/Resolved]
